FAERS Safety Report 10043094 (Version 1)
Quarter: 2014Q1

REPORT INFORMATION
  Report Type: Spontaneous
  Country: US (occurrence: US)
  Receive Date: 20140328
  Receipt Date: 20140328
  Transmission Date: 20141002
  Serious: No
  Sender: FDA-Public Use
  Company Number: US-BIOGENIDEC-2014BI028361

PATIENT
  Sex: Female

DRUGS (1)
  1. AVONEX [Suspect]
     Indication: MULTIPLE SCLEROSIS
     Route: 030
     Dates: start: 20130506, end: 20131118

REACTIONS (5)
  - Blood count abnormal [Unknown]
  - Dyspnoea [Unknown]
  - Headache [Unknown]
  - Neck pain [Unknown]
  - Muscle spasms [Unknown]
